FAERS Safety Report 7994294-3 (Version None)
Quarter: 2011Q4

REPORT INFORMATION
  Report Type: 
  Country: None (occurrence: None)
  Receive Date: 20111217
  Receipt Date: 20111217
  Transmission Date: 20120403
  Serious: No
  Sender: FDA-Public Use
  Company Number: None

PATIENT
  Sex: Female
  Weight: 65.7716 kg

DRUGS (1)
  1. TOPROLL MANUFACTURER NOT KNOWN [Suspect]
     Indication: CARDIAC DISORDER
     Dosage: 1 PILL ONCE A DAY BY MOUTH
     Route: 048
     Dates: start: 20050101, end: 20100101

REACTIONS (1)
  - ALOPECIA [None]
